APPROVED DRUG PRODUCT: FLUOXETINE HYDROCHLORIDE
Active Ingredient: FLUOXETINE HYDROCHLORIDE
Strength: EQ 40MG BASE
Dosage Form/Route: CAPSULE;ORAL
Application: A075207 | Product #003
Applicant: PHARMOBEDIENT CONSULTING LLC
Approved: May 25, 2007 | RLD: No | RS: No | Type: DISCN